FAERS Safety Report 18123020 (Version 2)
Quarter: 2020Q3

REPORT INFORMATION
  Report Type: Spontaneous
  Country: DE (occurrence: DE)
  Receive Date: 20200807
  Receipt Date: 20200903
  Transmission Date: 20201103
  Serious: Yes (Congenital Anomaly, Other)
  Sender: FDA-Public Use
  Company Number: DE-SUN PHARMACEUTICAL INDUSTRIES LTD-2020RR-256326

PATIENT
  Age: 1 Day
  Sex: Female
  Weight: 2.24 kg

DRUGS (3)
  1. L?THYROXIN [Concomitant]
     Active Substance: LEVOTHYROXINE SODIUM
     Indication: AUTOIMMUNE THYROIDITIS
     Dosage: 50 ?G/D
     Route: 064
     Dates: start: 20190624, end: 20200309
  2. ISOTRETINOIN. [Suspect]
     Active Substance: ISOTRETINOIN
     Indication: ACNE
     Dosage: 30 MILLIGRAM, DAILY
     Route: 064
     Dates: start: 20190709, end: 20190809
  3. BELLISSIMA [Concomitant]
     Active Substance: CHLORMADINONE ACETATE\ETHINYL ESTRADIOL
     Indication: ORAL CONTRACEPTION
     Dosage: 1 DOSAGE FORM, DAILY
     Route: 064
     Dates: start: 20190624, end: 20190809

REACTIONS (9)
  - Small for dates baby [Recovered/Resolved]
  - Patent ductus arteriosus [Unknown]
  - Foetal exposure during pregnancy [Unknown]
  - Cerebellar hypoplasia [Not Recovered/Not Resolved]
  - Double outlet right ventricle [Unknown]
  - Microcephaly [Unknown]
  - Fallot^s tetralogy [Not Recovered/Not Resolved]
  - Atrial septal defect [Unknown]
  - Ventricular septal defect [Unknown]

NARRATIVE: CASE EVENT DATE: 20200309
